FAERS Safety Report 5285937-6 (Version None)
Quarter: 2007Q2

REPORT INFORMATION
  Report Type: 
  Country: None (occurrence: None)
  Receive Date: 20070404
  Receipt Date: 20070403
  Transmission Date: 20071010
  Serious: Yes (Hospitalization)
  Sender: FDA-Public Use
  Company Number: FRWYE728220FEB07

PATIENT
  Age: 61 Year
  Sex: Male

DRUGS (16)
  1. TAZOCILLINE [Suspect]
     Indication: PYREXIA
     Dosage: 4 G PIPERACILLIN/500 MG TAZOBACTAM 3 TIMES DAILY
     Route: 042
     Dates: start: 20070111, end: 20070114
  2. TAZOCILLINE [Suspect]
     Dosage: UNKNOWN
     Route: 042
     Dates: start: 20070118, end: 20070119
  3. CANCIDAS [Suspect]
     Indication: PYREXIA
     Route: 042
     Dates: start: 20070112, end: 20070119
  4. TARGOCID [Suspect]
     Indication: PYREXIA
     Route: 042
     Dates: start: 20070111, end: 20070112
  5. TARGOCID [Suspect]
     Dosage: UNKNOWN
     Route: 042
     Dates: start: 20070118, end: 20070122
  6. BRICANYL [Suspect]
     Dosage: 5 MG/2 ML 3 TIMES DAILY
     Route: 055
     Dates: start: 20070111, end: 20070119
  7. ATROVENT [Suspect]
     Dosage: 0.5 MG/2ML 3 TIMES DAILY
     Route: 055
     Dates: start: 20070111, end: 20070119
  8. CELLCEPT [Concomitant]
     Dosage: UNKNOWN
  9. VALGANCICLOVIR HCL [Concomitant]
     Indication: CYTOMEGALOVIRUS INFECTION
     Dosage: 900 MG TOTAL DAILY
     Route: 048
  10. BACTRIM DS [Concomitant]
     Dosage: 1200 MG TOTAL WEEKLY
     Route: 048
  11. CELLUVISC [Concomitant]
     Dosage: 6 DROPS TOTAL DAILY
     Route: 047
     Dates: start: 20070112
  12. ROPINIROLE HCL [Concomitant]
     Dosage: UNKNOWN
     Route: 048
  13. DOXAZOSIN MESYLATE [Concomitant]
     Dosage: UNKNOWN
     Route: 048
  14. ACTONEL [Concomitant]
     Dosage: UNKNOWN
     Route: 048
  15. GENTAMICIN [Suspect]
     Indication: PYREXIA
     Route: 042
     Dates: start: 20070111, end: 20070115
  16. RIFAMYCINE CHIBRET [Suspect]
     Dosage: UNKNOWN
     Route: 047
     Dates: start: 20070112, end: 20070119

REACTIONS (3)
  - CHRONIC GRAFT VERSUS HOST DISEASE [None]
  - LACRIMATION INCREASED [None]
  - SKIN NECROSIS [None]
